FAERS Safety Report 5818852-7 (Version None)
Quarter: 2008Q3

REPORT INFORMATION
  Report Type: 
  Country: None (occurrence: None)
  Receive Date: 20080718
  Receipt Date: 20080714
  Transmission Date: 20090109
  Serious: Yes (Death)
  Sender: FDA-Public Use
  Company Number: 163-21880-08061764

PATIENT
  Age: 86 Year
  Sex: Male

DRUGS (1)
  1. REVLIMID [Suspect]
     Indication: LYMPHOMA
     Dosage: 20 MG, 2 IN 1 D, ORAL
     Route: 048
     Dates: start: 20080410, end: 20080526

REACTIONS (2)
  - DISEASE PROGRESSION [None]
  - LYMPHOMA [None]
